FAERS Safety Report 5677190-6 (Version None)
Quarter: 2008Q1

REPORT INFORMATION
  Report Type: 
  Country: None (occurrence: None)
  Receive Date: 20080324
  Receipt Date: 20080313
  Transmission Date: 20080703
  Serious: Yes (Other)
  Sender: FDA-Public Use
  Company Number: HQWYE212717JUL04

PATIENT
  Sex: Female
  Weight: 56.75 kg

DRUGS (2)
  1. PREMPRO [Suspect]
     Indication: HORMONE REPLACEMENT THERAPY
  2. ESTRACE [Suspect]
     Indication: HORMONE REPLACEMENT THERAPY
     Dosage: UNKNOWN
     Route: 048
     Dates: start: 20030101

REACTIONS (3)
  - BREAST CANCER IN SITU [None]
  - BREAST CANCER METASTATIC [None]
  - DEPRESSION [None]
